FAERS Safety Report 21653223 (Version 2)
Quarter: 2022Q4

REPORT INFORMATION
  Report Type: Spontaneous
  Country: US (occurrence: US)
  Receive Date: 20221128
  Receipt Date: 20221221
  Transmission Date: 20230113
  Serious: No
  Sender: FDA-Public Use
  Company Number: US-FreseniusKabi-FK202216497

PATIENT
  Age: 75 Year
  Sex: Male
  Weight: 98.43 kg

DRUGS (6)
  1. ROMIDEPSIN [Suspect]
     Active Substance: ROMIDEPSIN
     Indication: Malignant melanoma
     Dosage: 31.9 MG IN 500ML NORMAL SALINE
     Route: 042
     Dates: start: 20221109, end: 20221109
  2. ROMIDEPSIN [Suspect]
     Active Substance: ROMIDEPSIN
     Route: 042
     Dates: start: 20221130, end: 20221130
  3. ZOFRAN [Concomitant]
     Active Substance: ONDANSETRON HYDROCHLORIDE
     Indication: Premedication
     Route: 042
     Dates: start: 20221109
  4. ZOFRAN [Concomitant]
     Active Substance: ONDANSETRON HYDROCHLORIDE
     Route: 042
     Dates: start: 20221130, end: 20221130
  5. BENADRYL [Concomitant]
     Active Substance: DIPHENHYDRAMINE HYDROCHLORIDE
     Indication: Premedication
     Route: 042
     Dates: start: 20221109
  6. BENADRYL [Concomitant]
     Active Substance: DIPHENHYDRAMINE HYDROCHLORIDE
     Route: 042
     Dates: start: 20221130, end: 20221130

REACTIONS (5)
  - Tremor [Recovered/Resolved]
  - Feeling cold [Recovered/Resolved]
  - Chills [Recovered/Resolved]
  - Back pain [Recovered/Resolved]
  - Cough [Recovered/Resolved]

NARRATIVE: CASE EVENT DATE: 20221109
